FAERS Safety Report 18753621 (Version 1)
Quarter: 2021Q1

REPORT INFORMATION
  Report Type: Spontaneous
  Country: US (occurrence: US)
  Receive Date: 20210118
  Receipt Date: 20210118
  Transmission Date: 20210419
  Serious: Yes (Hospitalization, Other)
  Sender: FDA-Public Use
  Company Number: US-AMGEN-USASP2021005900

PATIENT
  Age: 37 Year
  Sex: Female

DRUGS (10)
  1. OTEZLA [Suspect]
     Active Substance: APREMILAST
     Indication: PRODUCT USED FOR UNKNOWN INDICATION
     Dosage: 30 MILLIGRAM, BID
     Route: 048
  2. LEVOTHYROXIN [Concomitant]
     Active Substance: LEVOTHYROXINE
  3. XARELTO [Concomitant]
     Active Substance: RIVAROXABAN
  4. NASCOBAL [Concomitant]
     Active Substance: CYANOCOBALAMIN
  5. PANTOPRAZOLE [Concomitant]
     Active Substance: PANTOPRAZOLE
  6. ENOXAPARIN [Concomitant]
     Active Substance: ENOXAPARIN
  7. FOLIC ACID. [Concomitant]
     Active Substance: FOLIC ACID
  8. METHOTREXATE. [Concomitant]
     Active Substance: METHOTREXATE
  9. SUCRALFATE. [Concomitant]
     Active Substance: SUCRALFATE
  10. VENLAFAXINE [Concomitant]
     Active Substance: VENLAFAXINE HYDROCHLORIDE

REACTIONS (3)
  - Condition aggravated [Not Recovered/Not Resolved]
  - Metabolic surgery [Unknown]
  - Product dose omission issue [Not Recovered/Not Resolved]
